FAERS Safety Report 13588437 (Version 1)
Quarter: 2017Q2

REPORT INFORMATION
  Report Type: Spontaneous
  Country: US (occurrence: US)
  Receive Date: 20170529
  Receipt Date: 20170529
  Transmission Date: 20170830
  Serious: No
  Sender: FDA-Public Use
  Company Number: US-BAUSCH-BL-2016-011359

PATIENT
  Age: 56 Year
  Sex: Female

DRUGS (6)
  1. LOTEMAX [Suspect]
     Active Substance: LOTEPREDNOL ETABONATE
     Indication: POSTOPERATIVE CARE
     Dosage: 1 DROP IN RIGHT EYE TWICE DAILY
     Route: 047
     Dates: start: 20160404, end: 20160507
  2. PROLENSA [Suspect]
     Active Substance: BROMFENAC SODIUM
     Indication: POSTOPERATIVE CARE
     Dosage: 1 DROP IN RIGHT EYE ONCE DAILY
     Route: 047
     Dates: start: 20160404, end: 20160507
  3. PROLENSA [Suspect]
     Active Substance: BROMFENAC SODIUM
     Dosage: 1 DROP IN LEFT EYE ONCE DAILY
     Route: 047
     Dates: start: 20160411
  4. LOTEMAX [Suspect]
     Active Substance: LOTEPREDNOL ETABONATE
     Dosage: 1 DROP IN LEFT EYE ONCE DAILY
     Route: 047
     Dates: start: 20160411
  5. BESIVANCE [Suspect]
     Active Substance: BESIFLOXACIN
     Indication: POSTOPERATIVE CARE
     Dosage: 1 DROP IN RIGHT EYE TWICE DAILY
     Route: 047
     Dates: start: 20160404, end: 201604
  6. BESIVANCE [Suspect]
     Active Substance: BESIFLOXACIN
     Dosage: 1 DROP IN LEFT EYE TWICE DAILY
     Route: 047
     Dates: start: 20160411, end: 201604

REACTIONS (3)
  - Visual impairment [Not Recovered/Not Resolved]
  - Vision blurred [Not Recovered/Not Resolved]
  - Visual acuity tests abnormal [Not Recovered/Not Resolved]

NARRATIVE: CASE EVENT DATE: 201604
